FAERS Safety Report 5441479-6 (Version None)
Quarter: 2007Q3

REPORT INFORMATION
  Report Type: 
  Country: None (occurrence: None)
  Receive Date: 20070904
  Receipt Date: 20070827
  Transmission Date: 20080115
  Serious: Yes (Other)
  Sender: FDA-Public Use
  Company Number: PHNU2007DE02975

PATIENT
  Age: 52 Year
  Sex: Male
  Weight: 96 kg

DRUGS (8)
  1. TRILEPTAL [Suspect]
     Indication: CONVULSION PROPHYLAXIS
     Dosage: 1200 MG/D, DECREASING DOSAGE
     Route: 048
     Dates: start: 20070522, end: 20070529
  2. FALITHROM (NGX) [Suspect]
     Dosage: 0.5 DF/D
     Route: 048
     Dates: start: 20070522
  3. FALITHROM (NGX) [Suspect]
     Dosage: 3 DF/D
     Route: 048
     Dates: start: 20070528
  4. FALITHROM (NGX) [Suspect]
     Route: 048
  5. AMARYL [Concomitant]
     Indication: DIABETES MELLITUS
     Dosage: 2 MG/D
     Route: 048
  6. RAMIPRIL [Concomitant]
     Indication: HYPERTENSION
     Dosage: 5 MG/D
     Route: 048
  7. SIMVASTATIN [Concomitant]
     Indication: HYPERLIPIDAEMIA
     Dosage: 20 MG/D
     Route: 048
  8. ALLOPURINOL [Concomitant]
     Indication: HYPERURICAEMIA
     Dosage: 100 MG/D
     Route: 048

REACTIONS (15)
  - ACTIVATED PARTIAL THROMBOPLASTIN TIME SHORTENED [None]
  - BLOOD CREATININE INCREASED [None]
  - C-REACTIVE PROTEIN INCREASED [None]
  - DRUG INTERACTION [None]
  - HAEMATOCRIT DECREASED [None]
  - HAEMOGLOBIN DECREASED [None]
  - INTERNATIONAL NORMALISED RATIO DECREASED [None]
  - LEUKOCYTURIA [None]
  - MEAN CELL HAEMOGLOBIN INCREASED [None]
  - PLATELET COUNT DECREASED [None]
  - PROTHROMBIN TIME SHORTENED [None]
  - RED BLOOD CELL COUNT DECREASED [None]
  - SPECIFIC GRAVITY URINE ABNORMAL [None]
  - UROBILIN URINE PRESENT [None]
  - WHITE BLOOD CELL COUNT INCREASED [None]
